FAERS Safety Report 9208654 (Version 1)
Quarter: 2013Q1

REPORT INFORMATION
  Report Type: Spontaneous
  Country: US (occurrence: None)
  Receive Date: 20120806
  Receipt Date: 20120806
  Transmission Date: 20140127
  Serious: Yes (Hospitalization)
  Sender: FDA-Public Use
  Company Number: DSU-2011-08105

PATIENT
  Age: 69 Year
  Sex: Female

DRUGS (3)
  1. BENICAR HCT [Suspect]
     Dosage: 40/ ??MG (QD), PER ORAL
     Route: 048
     Dates: start: 2011, end: 201110
  2. PRISTIQ [Suspect]
     Indication: ANXIETY
     Dosage: 50 MG (50 MG, QD)
     Dates: start: 201110
  3. LOPRESSOR (METOPROLOL TARTRATE) (METOPROLOL TARTRATE) [Concomitant]

REACTIONS (1)
  - Blood sodium decreased [None]
